FAERS Safety Report 15587196 (Version 1)
Quarter: 2018Q4

REPORT INFORMATION
  Report Type: Spontaneous
  Country: US (occurrence: US)
  Receive Date: 20181105
  Receipt Date: 20181105
  Transmission Date: 20190205
  Serious: Yes (Hospitalization, Other)
  Sender: FDA-Public Use
  Company Number: US-REGENERON PHARMACEUTICALS, INC.-2018-42718

PATIENT

DRUGS (2)
  1. EYLEA [Suspect]
     Active Substance: AFLIBERCEPT
     Indication: EYE HAEMORRHAGE
     Dosage: LAST DOSE
     Route: 031
     Dates: start: 201803, end: 201803
  2. EYLEA [Suspect]
     Active Substance: AFLIBERCEPT
     Indication: BLINDNESS
     Dosage: 3 INJECTIONS, RIGHT EYE
     Route: 031
     Dates: start: 2017, end: 201803

REACTIONS (5)
  - Ill-defined disorder [Unknown]
  - Septic shock [Unknown]
  - Amnesia [Unknown]
  - Off label use [Unknown]
  - Drug ineffective [Unknown]
